FAERS Safety Report 8881934 (Version 1)
Quarter: 2012Q4

REPORT INFORMATION
  Report Type: 
  Country: IT (occurrence: IT)
  Receive Date: 20121101
  Receipt Date: 20121101
  Transmission Date: 20130627
  Serious: Yes (Other)
  Sender: FDA-Public Use
  Company Number: IT-MYLANLABS-2012S1022029

PATIENT
  Age: 56 Year
  Sex: Male

DRUGS (6)
  1. PACLITAXEL [Suspect]
     Indication: NASOPHARYNGEAL CANCER
     Dosage: CYCLIC
     Route: 042
     Dates: start: 20120905, end: 20120927
  2. CARBOPLATIN PFIZER [Concomitant]
     Indication: PRODUCT USED FOR UNKNOWN INDICATION
     Dates: start: 20120905, end: 20120927
  3. SOLU CORTEF [Concomitant]
     Indication: PRODUCT USED FOR UNKNOWN INDICATION
  4. TRIMETON /00072502/ [Concomitant]
     Indication: PRODUCT USED FOR UNKNOWN INDICATION
  5. RANIDIL [Concomitant]
     Indication: PRODUCT USED FOR UNKNOWN INDICATION
  6. ONDANSETRON [Concomitant]
     Indication: PRODUCT USED FOR UNKNOWN INDICATION

REACTIONS (3)
  - Erythema [Recovered/Resolved]
  - Hyperhidrosis [Recovered/Resolved]
  - Blood pressure increased [Recovered/Resolved]
